FAERS Safety Report 5475541-9 (Version None)
Quarter: 2007Q4

REPORT INFORMATION
  Report Type: 
  Country: None (occurrence: None)
  Receive Date: 20071003
  Receipt Date: 20061016
  Transmission Date: 20080405
  Serious: No
  Sender: FDA-Public Use
  Company Number: US-KINGPHARMUSA00001-K200601323

PATIENT

DRUGS (3)
  1. SONATA [Suspect]
     Indication: INSOMNIA
     Dates: start: 20061001, end: 20061001
  2. EFFEXOR [Concomitant]
  3. CELEXA [Concomitant]

REACTIONS (3)
  - HOSTILITY [None]
  - IRRITABILITY [None]
  - MOOD SWINGS [None]
